FAERS Safety Report 9580422 (Version 1)
Quarter: 2013Q3

REPORT INFORMATION
  Report Type: Spontaneous
  Country: CA (occurrence: None)
  Receive Date: 20130916
  Receipt Date: 20130916
  Transmission Date: 20140515
  Serious: Yes (Other)
  Sender: FDA-Public Use
  Company Number: JPI-P-023905

PATIENT
  Age: 41 Year
  Sex: Female

DRUGS (5)
  1. XYREM (500 MILLIGRAM/MILLILITERS, SOLUTION) (SODIUM OXYBATE) [Suspect]
     Indication: CATAPLEXY
     Dosage: 4.5 GM (2.25 GM, 2 IN 1 D), ORAL
     Route: 048
     Dates: start: 20120805
  2. LEVOTHYROXINE [Concomitant]
  3. MODAFINIL [Concomitant]
  4. CEFUROXIME [Concomitant]
  5. FLUOXETINE [Concomitant]

REACTIONS (12)
  - Hallucination [None]
  - Rash [None]
  - Palpitations [None]
  - Generalised oedema [None]
  - Paraesthesia [None]
  - Dizziness [None]
  - Pain [None]
  - Diarrhoea [None]
  - Nausea [None]
  - Headache [None]
  - Heart rate increased [None]
  - Influenza [None]
